FAERS Safety Report 14733415 (Version 10)
Quarter: 2018Q4

REPORT INFORMATION
  Report Type: Report from Study
  Country: DK (occurrence: DK)
  Receive Date: 20180409
  Receipt Date: 20181120
  Transmission Date: 20190204
  Serious: Yes (Death, Life-Threatening, Hospitalization)
  Sender: FDA-Public Use
  Company Number: DK-ROCHE-2103474

PATIENT
  Age: 75 Year
  Sex: Male
  Weight: 93 kg

DRUGS (17)
  1. ATEZOLIZUMAB. [Suspect]
     Active Substance: ATEZOLIZUMAB
     Indication: HORMONE-REFRACTORY PROSTATE CANCER
     Dosage: DATE OF MOST RECENT DOSE OF ATEZOLIZUMAB 1200 MG PRIOR TO AE ONSET: 16/MAR/2018?ON DAY 1 OF EACH 21
     Route: 042
     Dates: start: 20180208
  2. ACETYLSALICYLSYRE [Concomitant]
     Active Substance: ASPIRIN
     Route: 048
     Dates: start: 20170621
  3. DENOSUMAB [Concomitant]
     Active Substance: DENOSUMAB
     Route: 058
     Dates: start: 20170125
  4. PARACETAMOL [Concomitant]
     Active Substance: ACETAMINOPHEN
     Route: 048
     Dates: start: 20140117, end: 20180405
  5. PARACETAMOL [Concomitant]
     Active Substance: ACETAMINOPHEN
     Dosage: NG (NASOGASTRIC)
     Route: 065
     Dates: start: 20180406
  6. ENALAPRIL MALEAT [Concomitant]
     Active Substance: ENALAPRIL MALEATE
     Route: 048
     Dates: start: 20140228
  7. AMLODIPIN BESILAT [Concomitant]
     Active Substance: AMLODIPINE BESYLATE
     Route: 048
     Dates: start: 20131205
  8. MEROPENEM. [Concomitant]
     Active Substance: MEROPENEM
     Route: 042
     Dates: start: 20180406, end: 20180406
  9. ENZALUTAMIDE [Suspect]
     Active Substance: ENZALUTAMIDE
     Indication: HORMONE-REFRACTORY PROSTATE CANCER
     Dosage: DATE OF MOST RECENT DOSE OF ENZALUTAMIDE 160 MG PRIOR TO AE ONSET: 28/MAR/2018
     Route: 048
     Dates: start: 20180208
  10. FLUCONAZOL [Concomitant]
     Active Substance: FLUCONAZOLE
     Route: 048
     Dates: start: 20180227, end: 20180308
  11. FLUCONAZOL [Concomitant]
     Active Substance: FLUCONAZOLE
     Route: 042
     Dates: start: 20180410, end: 20180414
  12. MAGNESIA [Concomitant]
     Active Substance: MAGNESIUM HYDROXIDE
     Dosage: NG (NASOGASTRIC)
     Route: 065
     Dates: start: 20180410
  13. TRIPTORELIN [Concomitant]
     Active Substance: TRIPTORELIN
     Route: 048
     Dates: start: 20170907
  14. CITALOPRAM [Concomitant]
     Active Substance: CITALOPRAM HYDROBROMIDE
     Dosage: NG (NASOGASTRIC)
     Route: 065
     Dates: start: 20180409
  15. PIPERACILLIN/TAZOBACTAM [Concomitant]
     Active Substance: PIPERACILLIN SODIUM\TAZOBACTAM SODIUM
     Route: 042
     Dates: start: 20180406, end: 20180413
  16. FLUCONAZOL [Concomitant]
     Active Substance: FLUCONAZOLE
     Route: 048
     Dates: start: 20180323, end: 20180409
  17. FRAGMIN [Concomitant]
     Active Substance: DALTEPARIN SODIUM
     Route: 058
     Dates: start: 20180406

REACTIONS (5)
  - Myositis [Fatal]
  - Lung infection [Recovered/Resolved]
  - Malaise [Not Recovered/Not Resolved]
  - Myocarditis [Not Recovered/Not Resolved]
  - Sinus bradycardia [Recovered/Resolved]

NARRATIVE: CASE EVENT DATE: 20180328
